FAERS Safety Report 7534685-8 (Version None)
Quarter: 2011Q2

REPORT INFORMATION
  Report Type: 
  Country: None (occurrence: None)
  Receive Date: 20110609
  Receipt Date: 20110411
  Transmission Date: 20111010
  Serious: Yes (Other)
  Sender: FDA-Public Use
  Company Number: PHHY2011AT36681

PATIENT
  Age: 86 Year
  Sex: Female

DRUGS (1)
  1. ZOMETA [Suspect]
     Indication: MULTIPLE MYELOMA
     Dosage: 4 MG, QMO
     Route: 042
     Dates: start: 20030101

REACTIONS (6)
  - DISEASE PROGRESSION [None]
  - PRIMARY SEQUESTRUM [None]
  - BONE FORMATION DECREASED [None]
  - BONE PAIN [None]
  - BONE DISORDER [None]
  - OSTEONECROSIS OF JAW [None]
